FAERS Safety Report 5802860-6 (Version None)
Quarter: 2008Q3

REPORT INFORMATION
  Report Type: 
  Country: None (occurrence: None)
  Receive Date: 20080708
  Receipt Date: 20080627
  Transmission Date: 20090109
  Serious: Yes (Life-Threatening, Hospitalization)
  Sender: FDA-Public Use
  Company Number: FR-JNJFOC-20080306638

PATIENT
  Age: 27 Year
  Sex: Male

DRUGS (1)
  1. REMICADE [Suspect]
     Indication: ANKYLOSING SPONDYLITIS
     Dosage: 5 MG/KG
     Route: 042

REACTIONS (4)
  - DIVERTICULAR PERFORATION [None]
  - PELVIC ABSCESS [None]
  - SIGMOIDITIS [None]
  - STREPTOCOCCAL SEPSIS [None]
